FAERS Safety Report 16531022 (Version 1)
Quarter: 2019Q3

REPORT INFORMATION
  Report Type: Other
  Country: GB (occurrence: GB)
  Receive Date: 20190705
  Receipt Date: 20190705
  Transmission Date: 20191004
  Serious: Yes (Other)
  Sender: FDA-Public Use
  Company Number: GB-AUROBINDO-AUR-APL-2013-06467

PATIENT

DRUGS (1)
  1. LEVETIRACETAM FILM-COATED TABLETS 250 MG [Suspect]
     Active Substance: LEVETIRACETAM
     Indication: PRODUCT USED FOR UNKNOWN INDICATION
     Dosage: UNK UNK,UNK,,1000 1 X DAY
     Route: 048

REACTIONS (4)
  - Pregnancy [Unknown]
  - Product use issue [Unknown]
  - Seizure [Unknown]
  - Maternal exposure during pregnancy [Recovered/Resolved]
